FAERS Safety Report 12065573 (Version 1)
Quarter: 2016Q1

REPORT INFORMATION
  Report Type: Report from Study
  Country: US (occurrence: US)
  Receive Date: 20160210
  Receipt Date: 20160210
  Transmission Date: 20160526
  Serious: Yes (Hospitalization)
  Sender: FDA-Public Use
  Company Number: US-BIOGEN-2016BI00185910

PATIENT
  Sex: Female

DRUGS (1)
  1. PLEGRIDY [Suspect]
     Active Substance: PEGINTERFERON BETA-1A
     Indication: MULTIPLE SCLEROSIS
     Route: 058
     Dates: start: 20160114, end: 20160128

REACTIONS (4)
  - Pyrexia [Unknown]
  - Mobility decreased [Unknown]
  - Adverse reaction [Not Recovered/Not Resolved]
  - Liver function test increased [Not Recovered/Not Resolved]
